FAERS Safety Report 20927167 (Version 2)
Quarter: 2022Q2

REPORT INFORMATION
  Report Type: Spontaneous
  Country: BR (occurrence: BR)
  Receive Date: 20220607
  Receipt Date: 20220621
  Transmission Date: 20220721
  Serious: Yes (Death)
  Sender: FDA-Public Use
  Company Number: BR-BAUSCH-BL-2022-013773

PATIENT
  Age: 66 Year
  Sex: Female

DRUGS (1)
  1. DEXAMETHASONE [Suspect]
     Active Substance: DEXAMETHASONE
     Indication: Thrombosis with thrombocytopenia syndrome
     Route: 065

REACTIONS (2)
  - Therapy non-responder [Fatal]
  - Leukaemoid reaction [Unknown]
